FAERS Safety Report 9893620 (Version 2)
Quarter: 2014Q1

REPORT INFORMATION
  Report Type: Report from Study
  Country: US (occurrence: US)
  Receive Date: 20140213
  Receipt Date: 20140310
  Transmission Date: 20141002
  Serious: No
  Sender: FDA-Public Use
  Company Number: PHEH2014US002768

PATIENT
  Sex: Female
  Weight: 62 kg

DRUGS (11)
  1. TASIGNA [Suspect]
     Indication: CHRONIC MYELOID LEUKAEMIA
     Dosage: 2 DF, Q12H
     Route: 048
     Dates: start: 20130409
  2. ESTRATEST [Concomitant]
  3. GLYBURIDE [Concomitant]
  4. PRAVASTATIN SODIUM [Concomitant]
     Indication: HYPERCHOLESTEROLAEMIA
     Dosage: 40 MG, NIGHTLY
  5. LISINOPRIL [Concomitant]
     Indication: HYPERTENSION
     Dosage: 15 MG, BID
  6. TRIAMTEREEN/HYDROCHLOORTHIAZIDE [Concomitant]
     Indication: HYPERTENSION
     Dosage: UNK UKN, UNK
  7. METFORMIN HCL [Concomitant]
  8. FENOFIBRATE [Concomitant]
     Indication: HYPERCHOLESTEROLAEMIA
  9. LANTUS [Concomitant]
     Indication: DIABETES MELLITUS
     Dosage: 90 U, NIGHTLY
  10. GLIPIZIDE/METFORMIN [Concomitant]
     Indication: DIABETES MELLITUS
     Dosage: 2 DF, BID
  11. HCT [Concomitant]
     Indication: HYPERTENSION
     Dosage: 25 MG, DAILY

REACTIONS (4)
  - Alopecia [Not Recovered/Not Resolved]
  - Decreased appetite [Not Recovered/Not Resolved]
  - Rash [Unknown]
  - Weight decreased [Unknown]
